FAERS Safety Report 6038928-1 (Version None)
Quarter: 2009Q1

REPORT INFORMATION
  Report Type: 
  Country: None (occurrence: None)
  Receive Date: 20090114
  Receipt Date: 20090114
  Transmission Date: 20090719
  Serious: Yes (Other)
  Sender: FDA-Public Use
  Company Number: None

PATIENT
  Sex: Female
  Weight: 52.1637 kg

DRUGS (3)
  1. VYVANSE [Suspect]
     Indication: DISTURBANCE IN ATTENTION
     Dosage: 60 MG DAILY PO
     Route: 048
     Dates: start: 20080801, end: 20081201
  2. CYMBALTA [Concomitant]
  3. KLONOPIN [Concomitant]

REACTIONS (6)
  - APATHY [None]
  - CRYING [None]
  - DEPRESSION [None]
  - FEELINGS OF WORTHLESSNESS [None]
  - SOCIAL AVOIDANT BEHAVIOUR [None]
  - SUICIDAL IDEATION [None]
